FAERS Safety Report 18862594 (Version 1)
Quarter: 2021Q1

REPORT INFORMATION
  Report Type: Spontaneous
  Country: US (occurrence: US)
  Receive Date: 20210209
  Receipt Date: 20210209
  Transmission Date: 20210420
  Serious: No
  Sender: FDA-Public Use
  Company Number: US-PURDUE PHARMA-USA-2020-0159145

PATIENT
  Sex: Female

DRUGS (7)
  1. OMEPRAZOLE. [Concomitant]
     Active Substance: OMEPRAZOLE
     Indication: GASTROOESOPHAGEAL REFLUX DISEASE
     Dosage: 40 MG, DAILY
     Route: 065
  2. TIZANIDINE. [Concomitant]
     Active Substance: TIZANIDINE
     Indication: PAIN
     Dosage: 2 MG, DAILY
     Route: 065
  3. BUTRANS [Suspect]
     Active Substance: BUPRENORPHINE
     Dosage: 20 MCG/HR, WEEKLY
     Route: 062
  4. BUTRANS [Suspect]
     Active Substance: BUPRENORPHINE
     Dosage: 10 MCG/HR, WEEKLY
     Route: 062
     Dates: start: 20200205
  5. BUTRANS [Suspect]
     Active Substance: BUPRENORPHINE
     Indication: PAIN
     Dosage: 20 MCG/HR, WEEKLY
     Route: 062
     Dates: start: 20200701, end: 20200729
  6. BUPROPION. [Concomitant]
     Active Substance: BUPROPION
     Indication: AFFECTIVE DISORDER
     Dosage: 150 MG, TID
     Route: 065
  7. LYRICA [Concomitant]
     Active Substance: PREGABALIN
     Indication: PAIN
     Dosage: 75 MG, DAILY
     Route: 065

REACTIONS (3)
  - Inadequate analgesia [Unknown]
  - Therapeutic product effect decreased [Unknown]
  - Aggression [Unknown]
